FAERS Safety Report 4361500-6 (Version None)
Quarter: 2004Q2

REPORT INFORMATION
  Report Type: 
  Country: None (occurrence: None)
  Receive Date: 20040521
  Receipt Date: 20031008
  Transmission Date: 20050107
  Serious: No
  Sender: FDA-Public Use
  Company Number: US-GLAXOSMITHKLINE-A0429531A

PATIENT
  Age: 54 Year
  Sex: Male

DRUGS (2)
  1. ZYBAN [Suspect]
     Dosage: 150MG TWICE PER DAY
     Route: 048
     Dates: end: 20030926
  2. XANAX [Concomitant]

REACTIONS (5)
  - DIZZINESS [None]
  - ENERGY INCREASED [None]
  - INSOMNIA [None]
  - SINUSITIS [None]
  - VERTIGO [None]
